FAERS Safety Report 6491950-3 (Version None)
Quarter: 2009Q4

REPORT INFORMATION
  Report Type: 
  Country: None (occurrence: None)
  Receive Date: 20091208
  Receipt Date: 20091125
  Transmission Date: 20100525
  Serious: Yes (Other)
  Sender: FDA-Public Use
  Company Number: 8048352

PATIENT
  Sex: Female

DRUGS (4)
  1. KEPPRA [Suspect]
     Dosage: (ORAL)
     Route: 048
  2. LAMOTRIGINE [Suspect]
     Dosage: (ORAL)
     Route: 048
  3. ZONEGRAN [Suspect]
     Dosage: (ORAL)
     Route: 048
  4. ZONEGRAN [Suspect]
     Dosage: (ORAL)
     Route: 048

REACTIONS (4)
  - DISORIENTATION [None]
  - DRUG TOXICITY [None]
  - SOMNOLENCE [None]
  - SUICIDE ATTEMPT [None]
